FAERS Safety Report 22119733 (Version 1)
Quarter: 2023Q1

REPORT INFORMATION
  Report Type: Spontaneous
  Country: US (occurrence: None)
  Receive Date: 20230320
  Receipt Date: 20230320
  Transmission Date: 20230417
  Serious: Yes (Hospitalization)
  Sender: FDA-Public Use
  Company Number: None

PATIENT
  Age: 46 Year
  Sex: Male
  Weight: 101.25 kg

DRUGS (9)
  1. TORADOL [Suspect]
     Active Substance: KETOROLAC TROMETHAMINE
     Indication: Back pain
     Dates: start: 20230316, end: 20230318
  2. Nadalol [Concomitant]
  3. LISINOPRIL [Concomitant]
     Active Substance: LISINOPRIL
  4. LISINOPRIL [Concomitant]
     Active Substance: LISINOPRIL
  5. ROSUVASTATIN [Concomitant]
     Active Substance: ROSUVASTATIN
  6. FOLIC ACID [Concomitant]
     Active Substance: FOLIC ACID
  7. B1 [Concomitant]
  8. VITAMINS [Concomitant]
     Active Substance: VITAMINS
  9. VITAMINS [Concomitant]
     Active Substance: VITAMINS

REACTIONS (1)
  - Seizure [None]

NARRATIVE: CASE EVENT DATE: 20230318
